FAERS Safety Report 20565235 (Version 1)
Quarter: 2022Q1

REPORT INFORMATION
  Report Type: Spontaneous
  Country: ES (occurrence: ES)
  Receive Date: 20220308
  Receipt Date: 20220308
  Transmission Date: 20220423
  Serious: Yes (Hospitalization, Other)
  Sender: FDA-Public Use
  Company Number: None

PATIENT
  Age: 65 Year
  Sex: Male
  Weight: 90 kg

DRUGS (9)
  1. CERTICAN [Interacting]
     Active Substance: EVEROLIMUS
     Indication: Liver transplant
     Dosage: 1 DOSAGE FORM, QD (1/24H)
     Route: 048
     Dates: start: 20180101
  2. CERTICAN [Interacting]
     Active Substance: EVEROLIMUS
     Dosage: 1 DOSAGE FORM, Q24H (1/24H)
     Route: 048
     Dates: start: 20190101
  3. BRIVUDINE [Interacting]
     Active Substance: BRIVUDINE
     Indication: Herpes zoster
     Dosage: 1 DOSAGE FORM, Q24H (1/24H)
     Route: 048
     Dates: start: 20220128, end: 20220203
  4. FUROSEMIDE [Concomitant]
     Active Substance: FUROSEMIDE
     Indication: Fluid retention
     Dosage: 1 DOSAGE FORM, Q24H (1/24H)
     Route: 048
     Dates: start: 20210101
  5. ALLOPURINOL [Concomitant]
     Active Substance: ALLOPURINOL
     Indication: Hyperuricaemia
     Dosage: 1 DOSAGE FORM, Q24H (1/24H)
     Route: 048
     Dates: start: 20200101
  6. FOLI DOCE [Concomitant]
     Indication: Vitamin supplementation
     Dosage: 1 DOSAGE FORM, Q24H (1/24H)
     Route: 048
     Dates: start: 20210101
  7. CALCIUM POLYSTYRENE SULFONATE [Concomitant]
     Active Substance: CALCIUM POLYSTYRENE SULFONATE
     Indication: Hyperkalaemia
     Dosage: 1 DOSAGE FORM, Q24H (1/24H)
     Route: 048
     Dates: start: 20210101
  8. PRAVASTATIN SODIUM [Concomitant]
     Active Substance: PRAVASTATIN SODIUM
     Indication: Hypercholesterolaemia
     Dosage: 1 DOSAGE FORM, Q24H (1/24H)
     Route: 048
     Dates: start: 20190101
  9. PANTOPRAZOLE SODIUM [Concomitant]
     Active Substance: PANTOPRAZOLE SODIUM
     Indication: Gastroduodenal ulcer
     Dosage: 1 DOSAGE FORM, Q24H (1/24H)
     Route: 048
     Dates: start: 20190101

REACTIONS (4)
  - Vomiting [Unknown]
  - Diarrhoea [Unknown]
  - Nausea [Unknown]
  - Depression [Unknown]

NARRATIVE: CASE EVENT DATE: 20220201
